FAERS Safety Report 12234414 (Version 1)
Quarter: 2016Q2

REPORT INFORMATION
  Report Type: Spontaneous
  Country: TR (occurrence: TR)
  Receive Date: 20160404
  Receipt Date: 20160404
  Transmission Date: 20160815
  Serious: Yes (Other)
  Sender: FDA-Public Use
  Company Number: TR-HERITAGE PHARMACEUTICALS-2016HTG00095

PATIENT
  Age: 43 Year
  Sex: Female

DRUGS (1)
  1. ACYCLOVIR. [Suspect]
     Active Substance: ACYCLOVIR
     Indication: HERPES ZOSTER DISSEMINATED
     Dosage: 10 MG/KG, EVERY 8 HOURS
     Route: 042

REACTIONS (3)
  - Instillation site vesicles [Recovered/Resolved]
  - Injection site thrombosis [Recovered/Resolved]
  - Injection site phlebitis [Recovered/Resolved]
